FAERS Safety Report 8766390 (Version 3)
Quarter: 2013Q4

REPORT INFORMATION
  Report Type: Spontaneous
  Country: BR (occurrence: BR)
  Receive Date: 20120904
  Receipt Date: 20131031
  Transmission Date: 20140711
  Serious: Yes (Death, Hospitalization)
  Sender: FDA-Public Use
  Company Number: BR-009507513-1209BRA000372

PATIENT
  Age: 53 Year
  Sex: Female
  Weight: 47 kg

DRUGS (2)
  1. EMEND [Suspect]
     Indication: NAUSEA
     Dosage: UNK
     Route: 048
     Dates: start: 201203, end: 201203
  2. FOLFIRINOX [Concomitant]
     Indication: PANCREATIC CARCINOMA
     Dosage: UNK
     Dates: start: 201203, end: 2012

REACTIONS (1)
  - Death [Fatal]
